FAERS Safety Report 25220465 (Version 1)
Quarter: 2025Q2

REPORT INFORMATION
  Report Type: Spontaneous
  Country: US (occurrence: None)
  Receive Date: 20250418
  Receipt Date: 20250418
  Transmission Date: 20250717
  Serious: Yes (unspecified)
  Sender: FDA-CTU
  Company Number: None

PATIENT
  Age: 77 Year
  Sex: Female

DRUGS (1)
  1. IBRANCE [Suspect]
     Active Substance: PALBOCICLIB
     Indication: Breast cancer female
     Dosage: FREQUENCY : DAILY;?
     Route: 048

REACTIONS (10)
  - Sinusitis [None]
  - Clostridium difficile infection [None]
  - Diarrhoea [None]
  - Balance disorder [None]
  - Asthenia [None]
  - Gait disturbance [None]
  - Dyspnoea [None]
  - Depressed mood [None]
  - Decreased interest [None]
  - Fall [None]
